FAERS Safety Report 8325408 (Version 4)
Quarter: 2012Q4

REPORT INFORMATION
  Report Type: 
  Country: US (occurrence: US)
  Receive Date: 20120106
  Receipt Date: 20121217
  Transmission Date: 20130627
  Serious: Yes (Death, Hospitalization)
  Sender: FDA-Public Use
  Company Number: PHHO2011US021754

PATIENT
  Age: 63 Year
  Sex: Male
  Weight: 77.1 kg

DRUGS (6)
  1. MYCOPHENOLATE MOFETIL [Suspect]
     Indication: RENAL TRANSPLANT
     Dosage: 1000 mg, BID
     Route: 048
     Dates: start: 20110803, end: 20111228
  2. MYCOPHENOLATE MOFETIL [Suspect]
     Dosage: 500 mg, BID
     Route: 048
     Dates: start: 20111229, end: 20120102
  3. MYCOPHENOLATE MOFETIL [Suspect]
     Dosage: 250 mg, UNK
     Route: 048
     Dates: start: 20120103, end: 20120103
  4. PREDNISONE [Suspect]
     Indication: RENAL TRANSPLANT
  5. TACROLIMUS [Suspect]
     Indication: RENAL TRANSPLANT
  6. SIMULECT [Suspect]
     Indication: HEART TRANSPLANT

REACTIONS (1)
  - Non-small cell lung cancer [Fatal]
